FAERS Safety Report 25224225 (Version 1)
Quarter: 2025Q2

REPORT INFORMATION
  Report Type: Spontaneous
  Country: HU (occurrence: HU)
  Receive Date: 20250422
  Receipt Date: 20250422
  Transmission Date: 20250716
  Serious: Yes (Other)
  Sender: SANDOZ
  Company Number: HU-SANDOZ-SDZ2023HU031864

PATIENT
  Sex: Female

DRUGS (1)
  1. CALCIUM\CHOLECALCIFEROL [Suspect]
     Active Substance: CALCIUM\CHOLECALCIFEROL
     Indication: Product used for unknown indication
     Route: 065

REACTIONS (3)
  - Foreign body in throat [Unknown]
  - Product preparation issue [Unknown]
  - Product physical consistency issue [Unknown]
